FAERS Safety Report 8936119 (Version 1)
Quarter: 2012Q4

REPORT INFORMATION
  Report Type: 
  Country: US (occurrence: US)
  Receive Date: 20121130
  Receipt Date: 20121130
  Transmission Date: 20130627
  Serious: No
  Sender: FDA-Public Use
  Company Number: US-ABBOTT-12P-163-0979846-00

PATIENT
  Sex: Male

DRUGS (1)
  1. ANDROGEL [Suspect]
     Indication: ANDROGEN DEFICIENCY
     Dosage: 3 pumps
     Route: 061
     Dates: start: 201201

REACTIONS (3)
  - Nipple pain [Not Recovered/Not Resolved]
  - Pruritus [Not Recovered/Not Resolved]
  - Breast tenderness [Not Recovered/Not Resolved]
